FAERS Safety Report 21929775 (Version 2)
Quarter: 2023Q1

REPORT INFORMATION
  Report Type: Other
  Country: US (occurrence: None)
  Receive Date: 20230131
  Receipt Date: 20230201
  Transmission Date: 20230417
  Serious: No
  Sender: FDA-Public Use
  Company Number: US-ROCHE-3275461

PATIENT
  Age: 43 Year
  Sex: Female

DRUGS (1)
  1. OCREVUS [Suspect]
     Active Substance: OCRELIZUMAB
     Indication: Multiple sclerosis
     Dosage: 600MG EVERY 6 MONTHS; DATE OF TREATMENT: 21/DEC/2022
     Route: 042
     Dates: start: 20200213

REACTIONS (1)
  - COVID-19 [Recovered/Resolved]
